FAERS Safety Report 18677979 (Version 1)
Quarter: 2020Q4

REPORT INFORMATION
  Report Type: Spontaneous
  Country: CN (occurrence: CN)
  Receive Date: 20201229
  Receipt Date: 20201229
  Transmission Date: 20210114
  Serious: Yes (Other)
  Sender: FDA-Public Use
  Company Number: CN-PFIZER INC-2020513174

PATIENT
  Age: 58 Year
  Sex: Male

DRUGS (2)
  1. CELECOXIB. [Suspect]
     Active Substance: CELECOXIB
     Indication: ANALGESIC THERAPY
     Dosage: 200 MG, 2X/DAY
     Route: 045
     Dates: start: 20201207, end: 20201211
  2. CELECOXIB. [Suspect]
     Active Substance: CELECOXIB
     Indication: ANTIPYRESIS

REACTIONS (4)
  - Condition aggravated [Recovering/Resolving]
  - Macule [Recovering/Resolving]
  - Rash erythematous [Recovering/Resolving]
  - Papule [Recovering/Resolving]

NARRATIVE: CASE EVENT DATE: 20201209
